FAERS Safety Report 6613476-6 (Version None)
Quarter: 2010Q1

REPORT INFORMATION
  Report Type: 
  Country: None (occurrence: None)
  Receive Date: 20100304
  Receipt Date: 20100219
  Transmission Date: 20100710
  Serious: Yes (Other)
  Sender: FDA-Public Use
  Company Number: US-GENZYME-CERZ-1001151

PATIENT

DRUGS (5)
  1. CEREZYME [Suspect]
     Indication: GAUCHER'S DISEASE
     Dosage: 800 U, Q2W
     Route: 042
     Dates: start: 20080201
  2. BENADRYL [Concomitant]
     Indication: PREMEDICATION
     Dosage: 1 OTHER, QW
     Route: 048
     Dates: start: 20091207
  3. ACETAMINOPHEN [Concomitant]
     Indication: PREMEDICATION
     Dosage: 1 OTHER, QW
     Route: 048
     Dates: start: 20090908
  4. MULTI-VITAMIN [Concomitant]
     Indication: DRUG USE FOR UNKNOWN INDICATION
     Dosage: UNK
     Route: 048
     Dates: start: 20100104
  5. FERROUS SULFATE TAB [Concomitant]
     Indication: IRON DEFICIENCY
     Dosage: 1 ML, BID
     Route: 048
     Dates: start: 20091209

REACTIONS (1)
  - PYREXIA [None]
